FAERS Safety Report 10213247 (Version 1)
Quarter: 2014Q2

REPORT INFORMATION
  Report Type: Spontaneous
  Country: US (occurrence: None)
  Receive Date: 20140530
  Receipt Date: 20140530
  Transmission Date: 20141212
  Serious: Yes (Other)
  Sender: FDA-Public Use
  Company Number: None

PATIENT
  Age: 74 Year
  Sex: Male
  Weight: 120.1 kg

DRUGS (1)
  1. OMEPRAZOLE [Suspect]
     Dates: start: 20140204

REACTIONS (1)
  - Hypomagnesaemia [None]
